FAERS Safety Report 7948679-1 (Version None)
Quarter: 2011Q4

REPORT INFORMATION
  Report Type: 
  Country: None (occurrence: None)
  Receive Date: 20111130
  Receipt Date: 20111119
  Transmission Date: 20120403
  Serious: Yes (Hospitalization)
  Sender: FDA-Public Use
  Company Number: AU-GENZYME-THYR-1000581

PATIENT
  Age: 65 Year
  Sex: Female

DRUGS (2)
  1. RADIOACTIVE IODINE SOLUTION [Suspect]
     Indication: THYROID CANCER
     Dosage: 4000 MBQ, UNK
     Route: 065
  2. THYROGEN [Suspect]
     Indication: THYROID CANCER
     Route: 030

REACTIONS (6)
  - OXYGEN SATURATION DECREASED [None]
  - LUNG CONSOLIDATION [None]
  - DYSPNOEA [None]
  - STRIDOR [None]
  - PAIN [None]
  - TRACHEAL DISORDER [None]
